FAERS Safety Report 4325761-1 (Version None)
Quarter: 2004Q1

REPORT INFORMATION
  Report Type: 
  Country: None (occurrence: None)
  Receive Date: 20040324
  Receipt Date: 20040310
  Transmission Date: 20041129
  Serious: Yes (Other)
  Sender: FDA-Public Use
  Company Number: GBS040314581

PATIENT
  Age: 61 Year
  Sex: Female

DRUGS (5)
  1. EVISTA [Suspect]
     Indication: PROPHYLAXIS
     Dosage: 60 MG
     Dates: start: 20031208
  2. ATENOLOL [Concomitant]
  3. RANITIDINE [Concomitant]
  4. LORATADINE [Concomitant]
  5. AMLODIPINE [Concomitant]

REACTIONS (2)
  - ATRIAL FIBRILLATION [None]
  - CIRCULATORY COLLAPSE [None]
